FAERS Safety Report 18077217 (Version 1)
Quarter: 2020Q3

REPORT INFORMATION
  Report Type: Spontaneous
  Country: IN (occurrence: IN)
  Receive Date: 20200727
  Receipt Date: 20200727
  Transmission Date: 20201103
  Serious: Yes (Death, Other)
  Sender: FDA-Public Use
  Company Number: IN-PFIZER INC-2020275647

PATIENT
  Age: 47 Year
  Sex: Male
  Weight: 56 kg

DRUGS (1)
  1. CRIZALK [Suspect]
     Active Substance: CRIZOTINIB
     Indication: NON-SMALL CELL LUNG CANCER
     Dosage: 250 MG, 2X/DAY
     Route: 048
     Dates: start: 20200717, end: 20200717

REACTIONS (3)
  - Death [Fatal]
  - General physical health deterioration [Unknown]
  - Discomfort [Unknown]

NARRATIVE: CASE EVENT DATE: 20200717
